FAERS Safety Report 19331985 (Version 1)
Quarter: 2021Q2

REPORT INFORMATION
  Report Type: Spontaneous
  Country: US (occurrence: US)
  Receive Date: 20210529
  Receipt Date: 20210529
  Transmission Date: 20210717
  Serious: Yes (Other)
  Sender: FDA-Public Use
  Company Number: US-DRREDDYS-USA/USA/21/0135953

PATIENT
  Age: 53 Year
  Sex: Male

DRUGS (45)
  1. BACLOFEN. [Suspect]
     Active Substance: BACLOFEN
     Indication: SUNCT SYNDROME
  2. INDOMETHACIN. [Suspect]
     Active Substance: INDOMETHACIN
     Indication: SUNCT SYNDROME
  3. PROPRANOLOL [Suspect]
     Active Substance: PROPRANOLOL HYDROCHLORIDE
     Indication: SUNCT SYNDROME
  4. FENTANYL. [Suspect]
     Active Substance: FENTANYL
     Indication: PRODUCT USED FOR UNKNOWN INDICATION
  5. VENLAFAXINE [Suspect]
     Active Substance: VENLAFAXINE HYDROCHLORIDE
     Indication: PRODUCT USED FOR UNKNOWN INDICATION
  6. AMITRIPTYLINE [Suspect]
     Active Substance: AMITRIPTYLINE
     Indication: SUNCT SYNDROME
  7. CLOMIPHENE [Suspect]
     Active Substance: CLOMIPHENE
     Indication: SUNCT SYNDROME
  8. BOTOX [Suspect]
     Active Substance: ONABOTULINUMTOXINA
     Indication: SUNCT SYNDROME
  9. DICLOFENAC [Suspect]
     Active Substance: DICLOFENAC
     Indication: SUNCT SYNDROME
  10. MORPHINE [Suspect]
     Active Substance: MORPHINE
     Indication: SUNCT SYNDROME
  11. TOPIRAMATE. [Suspect]
     Active Substance: TOPIRAMATE
     Indication: SUNCT SYNDROME
  12. ZOLMITRIPTAN. [Suspect]
     Active Substance: ZOLMITRIPTAN
     Indication: SUNCT SYNDROME
  13. HYDROMORPHONE [Suspect]
     Active Substance: HYDROMORPHONE
     Indication: PRODUCT USED FOR UNKNOWN INDICATION
     Dosage: AS NEEDED WITH ONLY MILD RELIEF
  14. CELECOXIB ORAL SOLUTION [Suspect]
     Active Substance: CELECOXIB
     Indication: SUNCT SYNDROME
  15. OXCARBAZEPINE. [Suspect]
     Active Substance: OXCARBAZEPINE
     Indication: SUNCT SYNDROME
  16. OXYCONTIN [Suspect]
     Active Substance: OXYCODONE HYDROCHLORIDE
     Indication: SUNCT SYNDROME
  17. VALPROIC ACID. [Suspect]
     Active Substance: VALPROIC ACID
     Indication: SUNCT SYNDROME
  18. QUETIAPINE FUMARATE TABLETS [Suspect]
     Active Substance: QUETIAPINE FUMARATE
     Indication: SUNCT SYNDROME
  19. ESCITALOPRAM [Suspect]
     Active Substance: ESCITALOPRAM OXALATE
     Indication: SUNCT SYNDROME
  20. GABAPENTIN. [Suspect]
     Active Substance: GABAPENTIN
     Indication: SUNCT SYNDROME
  21. VERAPAMIL [Suspect]
     Active Substance: VERAPAMIL HYDROCHLORIDE
     Indication: SUNCT SYNDROME
  22. LAMOTRIGINE TABLETS [Suspect]
     Active Substance: LAMOTRIGINE
     Indication: SUNCT SYNDROME
  23. ELETRIPTAN. [Suspect]
     Active Substance: ELETRIPTAN
     Indication: SUNCT SYNDROME
  24. OXYCONTIN [Suspect]
     Active Substance: OXYCODONE HYDROCHLORIDE
     Indication: SUNCT SYNDROME
     Dosage: 2 TABLETS PER DAY
  25. PREDNISONE. [Suspect]
     Active Substance: PREDNISONE
     Indication: SUNCT SYNDROME
  26. ZONISAMIDE. [Suspect]
     Active Substance: ZONISAMIDE
     Indication: SUNCT SYNDROME
  27. DEXAMETHASONE SODIUM PHOSPHATE INJECTION, 4 MG/ML [Suspect]
     Active Substance: DEXAMETHASONE SODIUM PHOSPHATE
     Indication: SUNCT SYNDROME
  28. CARBAMAZEPINE. [Suspect]
     Active Substance: CARBAMAZEPINE
     Indication: SUNCT SYNDROME
  29. DIHYDROERGOTAMINE [Suspect]
     Active Substance: DIHYDROERGOTAMINE
     Indication: SUNCT SYNDROME
  30. MYOBLOC [Suspect]
     Active Substance: RIMABOTULINUMTOXINB
     Indication: SUNCT SYNDROME
  31. DEXTROPROPOXYPHENE [Suspect]
     Active Substance: PROPOXYPHENE HYDROCHLORIDE
     Indication: SUNCT SYNDROME
  32. KETAMINE [Suspect]
     Active Substance: KETAMINE
     Indication: SUNCT SYNDROME
  33. LIDOCAINE. [Suspect]
     Active Substance: LIDOCAINE
     Indication: SUNCT SYNDROME
     Route: 042
  34. LORAZEPAM INJECTION USP, 2 MG/ML AND 4 MG/ML [Suspect]
     Active Substance: LORAZEPAM
     Indication: SUNCT SYNDROME
  35. SUMATRIPTAN INJECTION USP, 6 MG/0.5 ML [Suspect]
     Active Substance: SUMATRIPTAN
     Indication: SUNCT SYNDROME
  36. HYDROCHLOROTHIAZIDE. [Suspect]
     Active Substance: HYDROCHLOROTHIAZIDE
     Indication: SUNCT SYNDROME
  37. LACOSAMIDE. [Suspect]
     Active Substance: LACOSAMIDE
     Indication: SUNCT SYNDROME
  38. LITHIUM. [Suspect]
     Active Substance: LITHIUM
     Indication: SUNCT SYNDROME
  39. MELATONIN [Suspect]
     Active Substance: MELATONIN
     Indication: SUNCT SYNDROME
  40. PROCHLORPERAZINE. [Suspect]
     Active Substance: PROCHLORPERAZINE
     Indication: SUNCT SYNDROME
  41. PREGABALIN. [Suspect]
     Active Substance: PREGABALIN
     Indication: SUNCT SYNDROME
  42. ONDANSETRON [Suspect]
     Active Substance: ONDANSETRON
     Indication: SUNCT SYNDROME
  43. DIAZEPAM. [Suspect]
     Active Substance: DIAZEPAM
     Indication: SUNCT SYNDROME
  44. MAGNESIUM [Suspect]
     Active Substance: MAGNESIUM
     Indication: SUNCT SYNDROME
  45. OXYMORPHONE [Suspect]
     Active Substance: OXYMORPHONE
     Indication: SUNCT SYNDROME

REACTIONS (1)
  - Drug ineffective [Unknown]
